FAERS Safety Report 7989330-4 (Version None)
Quarter: 2011Q4

REPORT INFORMATION
  Report Type: 
  Country: None (occurrence: None)
  Receive Date: 20111219
  Receipt Date: 20111213
  Transmission Date: 20120403
  Serious: Yes (Other)
  Sender: FDA-Public Use
  Company Number: FR-BAYER-2011-120467

PATIENT
  Age: 50 Year
  Sex: Female

DRUGS (5)
  1. CIPROFLOXACIN [Suspect]
     Indication: PRODUCT USED FOR UNKNOWN INDICATION
     Dosage: UNK
     Dates: start: 20110107, end: 20110114
  2. CLASTOBAN [Concomitant]
     Dosage: UNK
     Dates: start: 20100601
  3. ACETAMINOPHEN [Concomitant]
     Dosage: UNK
     Dates: start: 20110107, end: 20110118
  4. NEXAVAR [Suspect]
     Indication: RENAL CANCER METASTATIC
     Dosage: UNK
     Route: 048
     Dates: start: 20110103, end: 20110114
  5. VALSARTAN [Concomitant]
     Dosage: UNK
     Dates: start: 20100706

REACTIONS (5)
  - STOMATITIS [None]
  - PYREXIA [None]
  - VULVITIS [None]
  - CHEILITIS [None]
  - RASH ERYTHEMATOUS [None]
